FAERS Safety Report 18923802 (Version 1)
Quarter: 2021Q1

REPORT INFORMATION
  Report Type: Report from Study
  Country: RU (occurrence: RU)
  Receive Date: 20210222
  Receipt Date: 20210222
  Transmission Date: 20210420
  Serious: Yes (Other)
  Sender: FDA-Public Use
  Company Number: RU-INCYTE CORPORATION-2020IN010946

PATIENT

DRUGS (4)
  1. JAKAVI [Suspect]
     Active Substance: RUXOLITINIB
     Indication: POLYCYTHAEMIA VERA
     Dosage: 15 MG, BID
     Route: 048
  2. JAKAVI [Suspect]
     Active Substance: RUXOLITINIB
     Dosage: 30 MG, PER DAY
     Route: 048
     Dates: start: 20190410
  3. JAKAVI [Suspect]
     Active Substance: RUXOLITINIB
     Dosage: 15 MG, QD (15 MG, PER DAY)
     Route: 048
  4. JAKAVI [Suspect]
     Active Substance: RUXOLITINIB
     Dosage: 15 MG, PER DAY
     Route: 048

REACTIONS (9)
  - Anaemia [Unknown]
  - Thrombocytopenia [Unknown]
  - Gastritis erosive [Recovering/Resolving]
  - Mobility decreased [Unknown]
  - Varicose vein [Unknown]
  - Erosive duodenitis [Recovering/Resolving]
  - Dyspnoea [Unknown]
  - Asthenia [Recovering/Resolving]
  - Bone pain [Recovering/Resolving]

NARRATIVE: CASE EVENT DATE: 201905
